FAERS Safety Report 6167420-9 (Version None)
Quarter: 2009Q2

REPORT INFORMATION
  Report Type: 
  Country: None (occurrence: None)
  Receive Date: 20090424
  Receipt Date: 20090416
  Transmission Date: 20091009
  Serious: Yes (Other)
  Sender: FDA-Public Use
  Company Number: PHHY2009BR14490

PATIENT
  Sex: Female

DRUGS (2)
  1. GLEEVEC [Suspect]
     Indication: CHRONIC MYELOID LEUKAEMIA
     Dosage: 400 MG, QD
     Dates: start: 20081101
  2. RIVOTRIL [Concomitant]
     Indication: INSOMNIA
     Dosage: 1TABLET AT NIGHT

REACTIONS (7)
  - EYE SWELLING [None]
  - HYPERHIDROSIS [None]
  - JOINT SWELLING [None]
  - MOOD ALTERED [None]
  - OEDEMA MOUTH [None]
  - OEDEMA PERIPHERAL [None]
  - RETCHING [None]
